FAERS Safety Report 10968761 (Version 1)
Quarter: 2015Q1

REPORT INFORMATION
  Report Type: Spontaneous
  Country: CA (occurrence: CA)
  Receive Date: 20150331
  Receipt Date: 20150331
  Transmission Date: 20150721
  Serious: Yes (Hospitalization, Other)
  Sender: FDA-Public Use
  Company Number: CA-ROCHE-1557641

PATIENT
  Age: 39 Year
  Sex: Female

DRUGS (3)
  1. PREDNISONE. [Suspect]
     Active Substance: PREDNISONE
     Dosage: 0.5 DF, QD
     Route: 065
     Dates: start: 20150318
  2. PREDNISONE. [Suspect]
     Active Substance: PREDNISONE
     Indication: PRODUCT USED FOR UNKNOWN INDICATION
     Dosage: 1 DF, QD
     Route: 065
     Dates: start: 20150313
  3. XOLAIR [Suspect]
     Active Substance: OMALIZUMAB
     Indication: ASTHMA
     Route: 058
     Dates: start: 20150303

REACTIONS (4)
  - Urticaria [Recovered/Resolved]
  - Insomnia [Unknown]
  - Eye infection [Recovering/Resolving]
  - Lung infection [Unknown]

NARRATIVE: CASE EVENT DATE: 20150313
